FAERS Safety Report 6369368-3 (Version None)
Quarter: 2009Q3

REPORT INFORMATION
  Report Type: 
  Country: None (occurrence: None)
  Receive Date: 20090917
  Receipt Date: 20090903
  Transmission Date: 20100115
  Serious: Yes (Death, Hospitalization)
  Sender: FDA-Public Use
  Company Number: 2009SP001661

PATIENT
  Age: 85 Year
  Sex: Female

DRUGS (1)
  1. ALVESCO [Suspect]
     Indication: WHEEZING
     Dosage: 160 UG; 1X; INHALATION
     Route: 055
     Dates: start: 20090618, end: 20090618

REACTIONS (5)
  - DRUG HYPERSENSITIVITY [None]
  - DYSPNOEA [None]
  - FALL [None]
  - HEMIPLEGIA [None]
  - RESUSCITATION [None]
